FAERS Safety Report 6533592-7 (Version None)
Quarter: 2010Q1

REPORT INFORMATION
  Report Type: 
  Country: None (occurrence: None)
  Receive Date: 20100111
  Receipt Date: 20100103
  Transmission Date: 20100710
  Serious: Yes (Other)
  Sender: FDA-Public Use
  Company Number: US-AMGEN-US384201

PATIENT
  Age: 11 Year
  Sex: Female
  Weight: 34.1 kg

DRUGS (2)
  1. ENBREL [Suspect]
     Indication: JUVENILE ARTHRITIS
     Route: 058
     Dates: start: 20081216, end: 20090417
  2. IBUPROFEN [Concomitant]

REACTIONS (1)
  - FIBROMYALGIA [None]
